FAERS Safety Report 10595429 (Version 1)
Quarter: 2014Q4

REPORT INFORMATION
  Report Type: Spontaneous
  Country: US (occurrence: None)
  Receive Date: 20141119
  Receipt Date: 20141119
  Transmission Date: 20150529
  Serious: Yes (Other)
  Sender: FDA-Public Use
  Company Number: None

PATIENT
  Age: 33 Year
  Sex: Female
  Weight: 65.77 kg

DRUGS (4)
  1. IBUPROFEN. [Concomitant]
     Active Substance: IBUPROFEN
  2. LEVOTHYROXINE [Concomitant]
     Active Substance: LEVOTHYROXINE
  3. QSYMIA [Suspect]
     Active Substance: PHENTERMINE HYDROCHLORIDE\TOPIRAMATE
     Indication: WEIGHT DECREASED
     Dosage: ONE PILL
     Route: 048
     Dates: start: 20140301, end: 20141118
  4. IUD NOS [Concomitant]
     Active Substance: COPPER OR LEVONORGESTREL

REACTIONS (20)
  - Affective disorder [None]
  - Antisocial behaviour [None]
  - Depression [None]
  - Irritability [None]
  - Abnormal behaviour [None]
  - Anger [None]
  - Restlessness [None]
  - Contusion [None]
  - Agitation [None]
  - Impulsive behaviour [None]
  - Mood swings [None]
  - Weight decreased [None]
  - Rebound effect [None]
  - Anxiety [None]
  - Mania [None]
  - Personality disorder [None]
  - Narcissistic personality disorder [None]
  - Aggression [None]
  - Social avoidant behaviour [None]
  - Family stress [None]

NARRATIVE: CASE EVENT DATE: 20141118
